FAERS Safety Report 4738415-4 (Version None)
Quarter: 2005Q3

REPORT INFORMATION
  Report Type: 
  Country: None (occurrence: None)
  Receive Date: 20050803
  Receipt Date: 20050721
  Transmission Date: 20060218
  Serious: Yes (Life-Threatening, Other)
  Sender: FDA-Public Use
  Company Number: 6015908F

PATIENT
  Age: 51 Year
  Sex: Male

DRUGS (8)
  1. NIASPAN [Suspect]
     Indication: HIGH DENSITY LIPOPROTEIN DECREASED
     Dosage: 500 MG QD PO
     Route: 048
     Dates: start: 20050512
  2. ASPIRIN [Concomitant]
  3. TESTOSTERONE HEXAHYDROBENZOATE [Concomitant]
  4. ATORVASTATIN CALCIUM [Concomitant]
  5. BISOPROLOL FUMARATE [Concomitant]
  6. DILTIAZEM HYDROCHLORIDE [Concomitant]
  7. DYTIDE [Concomitant]
  8. FOLIC ACID [Concomitant]

REACTIONS (7)
  - BLOOD PRESSURE IMMEASURABLE [None]
  - BURNING SENSATION [None]
  - FALL [None]
  - FLUSHING [None]
  - HEART RATE DECREASED [None]
  - PULSE ABSENT [None]
  - SYNCOPE [None]
